FAERS Safety Report 7573500-3 (Version None)
Quarter: 2011Q2

REPORT INFORMATION
  Report Type: 
  Country: None (occurrence: None)
  Receive Date: 20110525
  Receipt Date: 20110405
  Transmission Date: 20111010
  Serious: No
  Sender: FDA-Public Use
  Company Number: 324594

PATIENT
  Age: 35 Year
  Sex: Female

DRUGS (1)
  1. VICTOZA [Suspect]
     Indication: BLOOD GLUCOSE INCREASED
     Dosage: SUBCUTANEOUS
     Route: 058

REACTIONS (3)
  - INJECTION SITE HAEMORRHAGE [None]
  - PRODUCT CONTAMINATION WITH BODY FLUID [None]
  - INJECTION SITE ERYTHEMA [None]
